FAERS Safety Report 10267339 (Version 1)
Quarter: 2014Q2

REPORT INFORMATION
  Report Type: Spontaneous
  Country: US (occurrence: None)
  Receive Date: 20140626
  Receipt Date: 20140626
  Transmission Date: 20141212
  Serious: Yes (Death)
  Sender: FDA-Public Use
  Company Number: None

PATIENT
  Age: 85 Year
  Sex: Female
  Weight: 65.6 kg

DRUGS (1)
  1. VOTRIENT [Suspect]
     Indication: RENAL CELL CARCINOMA

REACTIONS (5)
  - Blood pressure increased [None]
  - Haemorrhage intracranial [None]
  - Brain herniation [None]
  - Cardiac arrest [None]
  - Pupil fixed [None]
